FAERS Safety Report 9806145 (Version 1)
Quarter: 2014Q1

REPORT INFORMATION
  Report Type: Spontaneous
  Country: US (occurrence: US)
  Receive Date: 20140109
  Receipt Date: 20140109
  Transmission Date: 20141002
  Serious: Yes (Other)
  Sender: FDA-Public Use
  Company Number: US-PFIZER INC-2014003662

PATIENT
  Sex: Female

DRUGS (2)
  1. CELEBREX [Suspect]
     Dosage: UNK
  2. IBUPROFEN [Suspect]
     Dosage: 1200 MG, UNK

REACTIONS (7)
  - Oesophageal ulcer [Unknown]
  - Back disorder [Unknown]
  - Intervertebral disc protrusion [Unknown]
  - Abasia [Unknown]
  - Dysstasia [Unknown]
  - Drug effect incomplete [Unknown]
  - Pain [Unknown]
